FAERS Safety Report 8530841-0 (Version None)
Quarter: 2012Q3

REPORT INFORMATION
  Report Type: 
  Country: None (occurrence: None)
  Receive Date: 20120723
  Receipt Date: 20120713
  Transmission Date: 20120928
  Serious: Yes (Hospitalization)
  Sender: FDA-Public Use
  Company Number: US-ROCHE-1088148

PATIENT
  Sex: Male

DRUGS (3)
  1. RITUXAN [Suspect]
     Indication: MANTLE CELL LYMPHOMA
  2. BENDAMUSTINE HYDROCHLORIDE [Suspect]
     Indication: MANTLE CELL LYMPHOMA
     Dates: start: 20120524
  3. BENDAMUSTINE HYDROCHLORIDE [Suspect]
     Dates: start: 20120525

REACTIONS (3)
  - RASH GENERALISED [None]
  - INFLAMMATION [None]
  - OEDEMA [None]
